FAERS Safety Report 20858057 (Version 4)
Quarter: 2022Q4

REPORT INFORMATION
  Report Type: Spontaneous
  Country: US (occurrence: US)
  Receive Date: 20220521
  Receipt Date: 20221114
  Transmission Date: 20230112
  Serious: No
  Sender: FDA-Public Use
  Company Number: US-LUPIN PHARMACEUTICALS INC.-2022-07104

PATIENT
  Sex: Female

DRUGS (1)
  1. ALBUTEROL SULFATE [Suspect]
     Active Substance: ALBUTEROL SULFATE
     Indication: Lower respiratory tract congestion
     Dosage: UNK, PRN
     Dates: start: 202205

REACTIONS (3)
  - Product packaging quantity issue [Unknown]
  - Wrong technique in product usage process [Unknown]
  - No adverse event [Unknown]
